FAERS Safety Report 6809435-0 (Version None)
Quarter: 2010Q2

REPORT INFORMATION
  Report Type: 
  Country: None (occurrence: None)
  Receive Date: 20100625
  Receipt Date: 20100614
  Transmission Date: 20101027
  Serious: Yes (Hospitalization)
  Sender: FDA-Public Use
  Company Number: KV200801572

PATIENT
  Age: 46 Year
  Sex: Female
  Weight: 83.9 kg

DRUGS (14)
  1. MORPHINE SULFATE [Suspect]
     Indication: BACK PAIN
     Dosage: 120 MG, (TWO TABLETS) BID PRN, ORAL
     Route: 048
     Dates: start: 20080508, end: 20080512
  2. HYDROCODONE BITARTRATE AND ACETAMINOPHEN (HYDROCODONE BITARTRATE, PARA [Concomitant]
  3. CLONIDINE [Concomitant]
  4. OMEPRAZOLE [Concomitant]
  5. COZAAR [Concomitant]
  6. NORETHINDRONE [Concomitant]
  7. FUROSEMIDE [Concomitant]
  8. METOPROLOL SUCCINATE [Concomitant]
  9. SOMA [Concomitant]
  10. NORTRIPTYLINE HCL [Concomitant]
  11. POTASSIUM CHLORIDE [Concomitant]
  12. GABAPENTIN [Concomitant]
  13. CYMBALTA [Concomitant]
  14. PHENERGAN (PROMETHAZINE) [Concomitant]

REACTIONS (38)
  - ACUTE HEPATIC FAILURE [None]
  - ALOPECIA [None]
  - ANXIETY [None]
  - BACK PAIN [None]
  - CHEST PAIN [None]
  - CONFUSIONAL STATE [None]
  - COUGH [None]
  - DECREASED APPETITE [None]
  - DEHYDRATION [None]
  - DEPRESSED LEVEL OF CONSCIOUSNESS [None]
  - DISTURBANCE IN ATTENTION [None]
  - DYSARTHRIA [None]
  - DYSPNOEA [None]
  - FACIAL BONES FRACTURE [None]
  - FALL [None]
  - FEELING GUILTY [None]
  - HEADACHE [None]
  - HOT FLUSH [None]
  - HYPERHIDROSIS [None]
  - HYPERTENSION [None]
  - HYPOAESTHESIA [None]
  - INSOMNIA [None]
  - MENTAL STATUS CHANGES [None]
  - MUSCULOSKELETAL STIFFNESS [None]
  - NAUSEA [None]
  - OVERDOSE [None]
  - PALPITATIONS [None]
  - PERSONALITY CHANGE DUE TO A GENERAL MEDICAL CONDITION [None]
  - PRURITUS [None]
  - RENAL FAILURE ACUTE [None]
  - RHABDOMYOLYSIS [None]
  - SEBORRHOEA [None]
  - SHOCK [None]
  - SOMNOLENCE [None]
  - STRESS [None]
  - VISUAL IMPAIRMENT [None]
  - VOMITING [None]
  - WHEEZING [None]
